FAERS Safety Report 4697059-3 (Version None)
Quarter: 2005Q2

REPORT INFORMATION
  Report Type: 
  Country: None (occurrence: None)
  Receive Date: 20050620
  Receipt Date: 20050429
  Transmission Date: 20051028
  Serious: No
  Sender: FDA-Public Use
  Company Number: US-YAMANOUCHI-YPA20050231

PATIENT
  Age: 72 Year
  Sex: Female
  Weight: 57.6068 kg

DRUGS (1)
  1. VESICARE [Suspect]
     Indication: STRESS INCONTINENCE
     Dosage: 5 MG QD PO
     Route: 048
     Dates: start: 20050401, end: 20050429

REACTIONS (1)
  - SOMNOLENCE [None]
